FAERS Safety Report 5588103-X (Version None)
Quarter: 2008Q1

REPORT INFORMATION
  Report Type: 
  Country: None (occurrence: None)
  Receive Date: 20080111
  Receipt Date: 20080104
  Transmission Date: 20080703
  Serious: Yes (Other)
  Sender: FDA-Public Use
  Company Number: US-ROCHE-539562

PATIENT
  Age: 27 Year
  Sex: Female
  Weight: 99.8 kg

DRUGS (5)
  1. KLONOPIN [Suspect]
     Indication: ANXIETY
     Route: 065
  2. REBIF [Suspect]
     Indication: MULTIPLE SCLEROSIS
     Route: 058
     Dates: start: 20060306, end: 20070901
  3. REBIF [Suspect]
     Route: 058
     Dates: start: 20071101
  4. LEXAPRO [Suspect]
     Indication: ANXIETY
     Route: 065
  5. ATENOLOL [Concomitant]

REACTIONS (1)
  - ABORTION SPONTANEOUS [None]
